FAERS Safety Report 5772567-2 (Version None)
Quarter: 2008Q2

REPORT INFORMATION
  Report Type: 
  Country: None (occurrence: None)
  Receive Date: 20080613
  Receipt Date: 20080605
  Transmission Date: 20081010
  Serious: Yes (Death, Other)
  Sender: FDA-Public Use
  Company Number: US-AMGEN-US277755

PATIENT
  Sex: Female
  Weight: 63.6 kg

DRUGS (6)
  1. PROCRIT [Suspect]
     Indication: ANAEMIA
  2. NEUPOGEN [Concomitant]
  3. LASIX [Concomitant]
  4. ZYRTEC [Concomitant]
  5. ALDACTONE [Concomitant]
  6. MORPHINE [Concomitant]

REACTIONS (4)
  - BREAST CANCER METASTATIC [None]
  - METASTASES TO BONE [None]
  - MYELOFIBROSIS [None]
  - PANCYTOPENIA [None]
